FAERS Safety Report 9494180 (Version 2)
Quarter: 2013Q3

REPORT INFORMATION
  Report Type: Spontaneous
  Country: US (occurrence: None)
  Receive Date: 20130828
  Receipt Date: 20130828
  Transmission Date: 20140515
  Serious: Yes (Other)
  Sender: FDA-Public Use
  Company Number: 2013P1018701

PATIENT
  Age: 64 Year
  Sex: Male
  Weight: 111.59 kg

DRUGS (11)
  1. INFUMORPH [Suspect]
     Indication: PAIN
  2. INFUMORPH [Suspect]
     Indication: RADICULAR PAIN
  3. INFUMORPH [Suspect]
     Indication: BACK PAIN
  4. FENOFIBRATE TABLET [Concomitant]
  5. ZONISAMIDE CAPSULE [Concomitant]
  6. CLONAZEPAM TABLETS, USP [Concomitant]
  7. RANITIDINE [Concomitant]
  8. CITALOPRAM HYDROBROMIDE [Concomitant]
  9. METHADONE HCL [Concomitant]
  10. BACLOFEN [Concomitant]
  11. HYDROMORPHONE [Concomitant]

REACTIONS (3)
  - Device breakage [None]
  - Pain [None]
  - Device occlusion [None]
